FAERS Safety Report 4507533-8 (Version None)
Quarter: 2004Q4

REPORT INFORMATION
  Report Type: 
  Country: None (occurrence: None)
  Receive Date: 20041118
  Receipt Date: 20041105
  Transmission Date: 20050328
  Serious: Yes (Hospitalization)
  Sender: FDA-Public Use
  Company Number: 2004076580

PATIENT
  Age: 73 Year
  Sex: Male

DRUGS (4)
  1. VIAGRA [Suspect]
     Indication: ILL-DEFINED DISORDER
     Dosage: (50 MG)
     Dates: start: 20030712
  2. AMIODARONE HYDROCHLORIDE [Concomitant]
  3. VITAMIN B1 AND B6 (PYRIDOXINE, THIAMINE) [Concomitant]
  4. ACETYLSALICYLIC LYSINE [Concomitant]

REACTIONS (2)
  - MALAISE [None]
  - VERTIGO [None]
